FAERS Safety Report 16826632 (Version 3)
Quarter: 2019Q4

REPORT INFORMATION
  Report Type: Spontaneous
  Country: US (occurrence: US)
  Receive Date: 20190919
  Receipt Date: 20191031
  Transmission Date: 20200122
  Serious: No
  Sender: FDA-Public Use
  Company Number: US-AMGEN-USASP2019154125

PATIENT
  Age: 46 Year
  Sex: Female

DRUGS (3)
  1. NEULASTA [Suspect]
     Active Substance: PEGFILGRASTIM
     Dosage: 6000 MICROGRAM
     Route: 065
  2. NEULASTA [Suspect]
     Active Substance: PEGFILGRASTIM
     Dosage: 6000 MICROGRAM
     Route: 065
  3. NEULASTA [Suspect]
     Active Substance: PEGFILGRASTIM
     Indication: PROPHYLAXIS
     Dosage: 6000 MICROGRAM
     Route: 065

REACTIONS (5)
  - Drug delivery system malfunction [Unknown]
  - Application site haemorrhage [Unknown]
  - Device occlusion [Unknown]
  - Drug dose omission by device [Unknown]
  - Application site bruise [Unknown]

NARRATIVE: CASE EVENT DATE: 201909
